FAERS Safety Report 20091507 (Version 1)
Quarter: 2021Q4

REPORT INFORMATION
  Report Type: Spontaneous
  Country: US (occurrence: None)
  Receive Date: 20211119
  Receipt Date: 20211119
  Transmission Date: 20220303
  Serious: Yes (Life-Threatening, Hospitalization, Other)
  Sender: FDA-Public Use
  Company Number: US-Merck Healthcare KGaA-9279817

PATIENT
  Age: 65 Year
  Sex: Female
  Weight: 63 kg

DRUGS (22)
  1. REBIF [Suspect]
     Active Substance: INTERFERON BETA-1A
     Indication: Multiple sclerosis
     Route: 058
     Dates: start: 2014
  2. TERIFLUNOMIDE [Suspect]
     Active Substance: TERIFLUNOMIDE
     Indication: Multiple sclerosis
     Route: 048
     Dates: start: 20140429, end: 20141201
  3. TERIFLUNOMIDE [Suspect]
     Active Substance: TERIFLUNOMIDE
     Route: 048
     Dates: start: 20140615
  4. TERIFLUNOMIDE [Suspect]
     Active Substance: TERIFLUNOMIDE
     Route: 048
     Dates: start: 20150615, end: 20160716
  5. TERIFLUNOMIDE [Suspect]
     Active Substance: TERIFLUNOMIDE
     Route: 048
  6. TECFIDERA [Suspect]
     Active Substance: DIMETHYL FUMARATE
     Indication: Multiple sclerosis
     Dates: start: 20140424
  7. BETASERON [Suspect]
     Active Substance: INTERFERON BETA-1B
     Indication: Multiple sclerosis
     Dates: start: 20030915, end: 20140415
  8. BETASERON [Suspect]
     Active Substance: INTERFERON BETA-1B
     Dates: start: 20140424
  9. AMLODIPINE [Concomitant]
     Active Substance: AMLODIPINE BESYLATE
     Indication: Product used for unknown indication
  10. VALSARTAN [Concomitant]
     Active Substance: VALSARTAN
     Indication: Product used for unknown indication
  11. PLAVIX [Concomitant]
     Active Substance: CLOPIDOGREL BISULFATE
     Indication: Product used for unknown indication
  12. POTASSIUM [Concomitant]
     Active Substance: POTASSIUM
     Indication: Product used for unknown indication
  13. POTASSIUM CHLORIDE [Concomitant]
     Active Substance: POTASSIUM CHLORIDE
     Indication: Product used for unknown indication
  14. PROMETHAZINE [Concomitant]
     Active Substance: PROMETHAZINE HYDROCHLORIDE
     Indication: Product used for unknown indication
  15. DOCUSATE SODIUM [Concomitant]
     Active Substance: DOCUSATE SODIUM
     Indication: Product used for unknown indication
  16. CARVEDILOL [Concomitant]
     Active Substance: CARVEDILOL
     Indication: Product used for unknown indication
  17. CEPHALEXIN [Concomitant]
     Active Substance: CEPHALEXIN
     Indication: Product used for unknown indication
  18. PREVACID [Concomitant]
     Active Substance: LANSOPRAZOLE
     Indication: Product used for unknown indication
  19. ATIVAN [Concomitant]
     Active Substance: LORAZEPAM
     Indication: Product used for unknown indication
  20. MELATONIN [Concomitant]
     Active Substance: MELATONIN
     Indication: Product used for unknown indication
  21. PRAVASTATIN [Concomitant]
     Active Substance: PRAVASTATIN
     Indication: Product used for unknown indication
  22. ONDANSETRON [Concomitant]
     Active Substance: ONDANSETRON
     Indication: Product used for unknown indication

REACTIONS (12)
  - Hypotension [Unknown]
  - Encephalopathy [Unknown]
  - Parkinson^s disease [Unknown]
  - Tremor [Unknown]
  - Bladder repair [Unknown]
  - Anorectal operation [Unknown]
  - Exostosis [Unknown]
  - Spinal operation [Recovering/Resolving]
  - Intervertebral disc protrusion [Unknown]
  - Hypertension [Unknown]
  - Nephrolithiasis [Not Recovered/Not Resolved]
  - Multiple sclerosis relapse [Unknown]

NARRATIVE: CASE EVENT DATE: 20140101
